FAERS Safety Report 25569141 (Version 2)
Quarter: 2025Q3

REPORT INFORMATION
  Report Type: Spontaneous
  Country: CH (occurrence: CH)
  Receive Date: 20250716
  Receipt Date: 20250723
  Transmission Date: 20251020
  Serious: Yes (Death)
  Sender: EISAI
  Company Number: CH-Eisai-EC-2025-193302

PATIENT
  Age: 70 Year

DRUGS (1)
  1. LENVATINIB [Suspect]
     Active Substance: LENVATINIB
     Indication: Hepatocellular carcinoma

REACTIONS (2)
  - Malignant neoplasm progression [Fatal]
  - Off label use [Fatal]

NARRATIVE: CASE EVENT DATE: 20241128
